FAERS Safety Report 15753074 (Version 1)
Quarter: 2018Q4

REPORT INFORMATION
  Report Type: Spontaneous
  Country: NL (occurrence: NL)
  Receive Date: 20181221
  Receipt Date: 20181221
  Transmission Date: 20190205
  Serious: Yes (Life-Threatening, Hospitalization)
  Sender: FDA-Public Use
  Company Number: NL-TEVA-2018-NL-989749

PATIENT
  Age: 78 Year
  Sex: Female
  Weight: 70 kg

DRUGS (12)
  1. GLIMEPIRIDE TABLET 2MG [Concomitant]
     Dosage: 2 MILLIGRAM DAILY; 1DD2MG
  2. METFORMINE [Suspect]
     Active Substance: METFORMIN HYDROCHLORIDE
     Indication: TYPE 2 DIABETES MELLITUS
     Dosage: TWICE DAILY 500MG
     Route: 065
     Dates: start: 20110909, end: 20171211
  3. CARBOMEER OOGGEL 2MG/G (CARBOMEER 980) [Concomitant]
     Dosage: IF NECESSARY USE, REPEAT IF NECESSARY, YEAR RECIPE
  4. METOPROLOL TABLET MGA 50MG (SUCCINAAT) [Concomitant]
     Dosage: 50 MILLIGRAM DAILY; 1DD1
  5. FUROSEMIDE TABLET 40MG [Concomitant]
     Active Substance: FUROSEMIDE
     Dosage: 1DD1; ZN 1 EXTRA
  6. CETIRIZINE TABLET 10MG [Concomitant]
     Dosage: 2DD2
  7. NITROFURANTOINE CAPSULE 100MG [Concomitant]
     Dosage: 100 MILLIGRAM DAILY; 1DD1
  8. METOPROLOL TABLET MGA 100MG (SUCCINAAT) [Concomitant]
     Active Substance: METOPROLOL
     Dosage: 100 MILLIGRAM DAILY; 1DD1
  9. ACENOCOUMAROL TABLET 1MG [Concomitant]
     Active Substance: ACENOCOUMAROL
     Dosage: 1 MILLIGRAM DAILY; ????1 X PER DAY BY APPOINTMENT
  10. RISEDRONINEZUUR/CALCIUMCARB TAB (COMBINATIEVERPAK) [Concomitant]
     Dosage: ACCORDING TO PRESCRIPTION
  11. SIMVASTATINE TABLET FO 40MG [Concomitant]
     Dosage: 40 MILLIGRAM DAILY; 1DD1
  12. DIGOXINE TABLET 0,125MG [Concomitant]
     Dosage: 125 MICROGRAM DAILY; 1DD1

REACTIONS (1)
  - Angioedema [Recovered/Resolved]

NARRATIVE: CASE EVENT DATE: 20120201
